FAERS Safety Report 8539679-1 (Version None)
Quarter: 2012Q3

REPORT INFORMATION
  Report Type: 
  Country: None (occurrence: None)
  Receive Date: 20120726
  Receipt Date: 20110720
  Transmission Date: 20120928
  Serious: No
  Sender: FDA-Public Use
  Company Number: US-ASTRAZENECA-2008UW25906

PATIENT
  Age: 12328 Day
  Sex: Female
  Weight: 56.7 kg

DRUGS (8)
  1. LORAZEPAM [Concomitant]
     Dosage: 1 MG, 1 TABLET BY MOUTH FOUR TIMES A DAY
     Route: 048
     Dates: start: 20050711
  2. CELEXA [Concomitant]
     Dosage: 40 MG, 1 TABLET BY MOUTH EVERY MORNING
     Route: 048
     Dates: start: 20031117
  3. TRAMADOL HYDROCHLORIDE AND ACETAMINOPHEN [Concomitant]
     Dosage: 37.5-325 MG,2 TABLETS BY MOUTH THREE TIMES A DAY
     Route: 048
     Dates: start: 20050701
  4. CLONAZEPAM [Concomitant]
     Dosage: 1 MG, 1 TABLET BY MOUTH AT BEDTIME AS NEEDED
     Route: 048
     Dates: start: 20031117
  5. METHYLPREDNISOLONE [Concomitant]
     Dosage: 4 MG, AS DIRECTED WITH FOOD
     Route: 048
     Dates: start: 20050830
  6. LIPITOR [Concomitant]
     Dosage: 1-10 MG
     Route: 048
     Dates: start: 20050629
  7. SEROQUEL [Suspect]
     Indication: DEPRESSION
     Dosage: 25-200MG
     Route: 048
     Dates: start: 20031103
  8. SYNTHROID [Concomitant]
     Dosage: 0.05 MG, 1 TABLET BY MOUTH EVERYDAY
     Route: 048
     Dates: start: 20050725

REACTIONS (3)
  - ROAD TRAFFIC ACCIDENT [None]
  - TYPE 2 DIABETES MELLITUS [None]
  - INFLUENZA [None]
